FAERS Safety Report 6469365-3 (Version None)
Quarter: 2009Q4

REPORT INFORMATION
  Report Type: 
  Country: None (occurrence: None)
  Receive Date: 20091203
  Receipt Date: 20070927
  Transmission Date: 20100525
  Serious: Yes (Death, Life-Threatening, Hospitalization)
  Sender: FDA-Public Use
  Company Number: SV-ELI_LILLY_AND_COMPANY-SV200710000034

PATIENT
  Age: 66 Year
  Sex: Female

DRUGS (4)
  1. DULOXETINE HYDROCHLORIDE [Suspect]
     Indication: DEPRESSION
     Dosage: 60 MG, DAILY (1/D)
     Route: 048
     Dates: start: 20070808, end: 20070818
  2. AKINETON [Concomitant]
  3. LEVOTHYROXINE SODIUM [Concomitant]
  4. FORADIL [Concomitant]

REACTIONS (6)
  - BLOOD BILIRUBIN INCREASED [None]
  - COMA [None]
  - HEPATIC ENCEPHALOPATHY [None]
  - JAUNDICE [None]
  - RESPIRATORY DISORDER [None]
  - SOMNOLENCE [None]
